FAERS Safety Report 10795158 (Version 1)
Quarter: 2015Q1

REPORT INFORMATION
  Report Type: Spontaneous
  Country: US (occurrence: US)
  Receive Date: 20150214
  Receipt Date: 20150214
  Transmission Date: 20150721
  Serious: No
  Sender: FDA-Public Use
  Company Number: US-GLAXOSMITHKLINE-A1051756A

PATIENT

DRUGS (1)
  1. NICORETTE [Suspect]
     Active Substance: NICOTINE
     Indication: EX-TOBACCO USER
     Dates: start: 201311

REACTIONS (5)
  - Throat irritation [Unknown]
  - Hypersensitivity [Unknown]
  - Speech disorder [Unknown]
  - Pharyngeal disorder [Unknown]
  - Throat tightness [Recovered/Resolved]
